FAERS Safety Report 17484693 (Version 1)
Quarter: 2020Q1

REPORT INFORMATION
  Report Type: Report from Study
  Country: KR (occurrence: KR)
  Receive Date: 20200302
  Receipt Date: 20200302
  Transmission Date: 20200409
  Serious: Yes (Death, Life-Threatening, Disabling, Congenital Anomaly)
  Sender: FDA-Public Use
  Company Number: KR-JNJFOC-20200231968

PATIENT

DRUGS (2)
  1. REMICADE [Suspect]
     Active Substance: INFLIXIMAB
     Indication: PRODUCT USED FOR UNKNOWN INDICATION
     Route: 042
  2. METHOTREXATE. [Concomitant]
     Active Substance: METHOTREXATE

REACTIONS (10)
  - Palpitations [Unknown]
  - Dyspnoea [Unknown]
  - Hypotension [Unknown]
  - Urticaria [Unknown]
  - Chest pain [Unknown]
  - Hypersensitivity [Unknown]
  - Adverse event [Fatal]
  - Chills [Unknown]
  - Feeling of body temperature change [Unknown]
  - Pruritus [Unknown]
